FAERS Safety Report 10765458 (Version 1)
Quarter: 2015Q1

REPORT INFORMATION
  Report Type: Spontaneous
  Country: IN (occurrence: None)
  Receive Date: 20150203
  Receipt Date: 20150203
  Transmission Date: 20150721
  Serious: Yes (Other)
  Sender: FDA-Public Use
  Company Number: 1546011

PATIENT
  Age: 35 Year
  Sex: Male

DRUGS (4)
  1. DEXAMETHASONE. [Concomitant]
     Active Substance: DEXAMETHASONE
  2. UNSPECIFIED ANTITUBERCULAR MEDICATION [Concomitant]
  3. LOREZAPAM [Concomitant]
  4. PHENYTOIN SODIUM (NON-SPECIFIC) [Suspect]
     Active Substance: PHENYTOIN SODIUM
     Indication: SEIZURE
     Dosage: 1 GM IV X1 THEN 300 MG PO QD
     Route: 042

REACTIONS (2)
  - Pain in extremity [None]
  - Purple glove syndrome [None]
